FAERS Safety Report 9832304 (Version 2)
Quarter: 2014Q1

REPORT INFORMATION
  Report Type: Spontaneous
  Country: JP (occurrence: JP)
  Receive Date: 20140121
  Receipt Date: 20140121
  Transmission Date: 20141002
  Serious: Yes (Hospitalization)
  Sender: FDA-Public Use
  Company Number: JP-ALLERGAN-1320170US

PATIENT
  Age: 56 Year
  Sex: Male

DRUGS (4)
  1. BOTOX [Suspect]
     Indication: MUSCLE SPASMS
     Dosage: 360 UNITS, SINGLE
     Route: 030
     Dates: start: 20131128, end: 20131128
  2. LANSOPRAZOLE [Concomitant]
     Indication: GASTRIC ULCER
     Dosage: 30 MG, QD
     Route: 048
  3. UNKNOWN DRUG [Concomitant]
     Indication: SLEEP DISORDER
     Dosage: 0.25 MG, QD
     Route: 048
  4. MYSLEE [Concomitant]
     Indication: SLEEP DISORDER
     Dosage: 5 MG, QD
     Dates: start: 20131129, end: 20131205

REACTIONS (3)
  - Anaemia [Recovering/Resolving]
  - Off label use [Unknown]
  - Blood copper decreased [Recovering/Resolving]
